FAERS Safety Report 14486615 (Version 1)
Quarter: 2018Q1

REPORT INFORMATION
  Report Type: Report from Study
  Country: IL (occurrence: IL)
  Receive Date: 20180205
  Receipt Date: 20180205
  Transmission Date: 20180509
  Serious: Yes (Other)
  Sender: FDA-Public Use
  Company Number: IL-TEVA-2018-IL-853405

PATIENT
  Age: 33 Year
  Sex: Male

DRUGS (7)
  1. RITUXIMAB. [Suspect]
     Active Substance: RITUXIMAB
     Dosage: SEVEN MAINTENANCE CYCLES
     Route: 065
     Dates: end: 200803
  2. VINCRISTINE [Suspect]
     Active Substance: VINCRISTINE
     Indication: B-CELL LYMPHOMA
     Dosage: SIX CYCLES OF R-CHOP
     Route: 065
     Dates: start: 200606
  3. RITUXIMAB. [Suspect]
     Active Substance: RITUXIMAB
     Dosage: TWO MORE CYCLES OF RITUXIMAB
     Route: 065
  4. PREDNISONE. [Suspect]
     Active Substance: PREDNISONE
     Indication: B-CELL LYMPHOMA
     Dosage: SIX CYCLES OF R-CHOP
     Route: 065
     Dates: start: 200606
  5. CYCLOPHOSPHAMIDE. [Suspect]
     Active Substance: CYCLOPHOSPHAMIDE
     Indication: B-CELL LYMPHOMA
     Dosage: SIX CYCLES OF R-CHOP
     Route: 065
     Dates: start: 200606
  6. ADRIAMYCIN [Suspect]
     Active Substance: DOXORUBICIN HYDROCHLORIDE
     Indication: B-CELL LYMPHOMA
     Dosage: SIX CYCLES OF R-CHOP
     Route: 065
     Dates: start: 200606
  7. RITUXIMAB. [Suspect]
     Active Substance: RITUXIMAB
     Indication: B-CELL LYMPHOMA
     Dosage: SIX CYCLES OF R-CHOP
     Route: 065
     Dates: start: 200606

REACTIONS (1)
  - Central nervous system enteroviral infection [Recovered/Resolved]
